FAERS Safety Report 9938796 (Version 1)
Quarter: 2014Q1

REPORT INFORMATION
  Report Type: Spontaneous
  Country: US (occurrence: US)
  Receive Date: 20140303
  Receipt Date: 20140303
  Transmission Date: 20141002
  Serious: No
  Sender: FDA-Public Use
  Company Number: US-PFIZER INC-2014055686

PATIENT
  Sex: Female

DRUGS (2)
  1. VERAPAMIL HCL [Suspect]
     Dosage: UNK
  2. DILTIAZEM HYDROCHLORIDE [Suspect]
     Dosage: UNK

REACTIONS (7)
  - Personality change [Unknown]
  - Depression [Unknown]
  - Fatigue [Unknown]
  - Dry skin [Unknown]
  - Dry eye [Unknown]
  - Vulvovaginal dryness [Unknown]
  - Vision blurred [Unknown]
